FAERS Safety Report 9925436 (Version 1)
Quarter: 2014Q1

REPORT INFORMATION
  Report Type: Spontaneous
  Country: US (occurrence: US)
  Receive Date: 20140226
  Receipt Date: 20140226
  Transmission Date: 20141002
  Serious: No
  Sender: FDA-Public Use
  Company Number: US-TEVA-461049USA

PATIENT
  Sex: Male

DRUGS (2)
  1. ACTIQ [Suspect]
     Indication: BACK PAIN
  2. ACTIQ [Suspect]
     Indication: PAIN

REACTIONS (3)
  - Back pain [Not Recovered/Not Resolved]
  - Off label use [Unknown]
  - Off label use [Unknown]
